FAERS Safety Report 21791005 (Version 1)
Quarter: 2022Q4

REPORT INFORMATION
  Report Type: Spontaneous
  Country: US (occurrence: US)
  Receive Date: 20221228
  Receipt Date: 20221228
  Transmission Date: 20230112
  Serious: No
  Sender: FDA-Public Use
  Company Number: US-CLOVIS ONCOLOGY-CLO-2022-000304

PATIENT
  Age: 76 Year
  Sex: Female

DRUGS (6)
  1. RUBRACA [Suspect]
     Active Substance: RUCAPARIB CAMSYLATE
     Indication: Ovarian cancer
     Dosage: 600 MILLIGRAM, BID
     Route: 048
     Dates: start: 20220222
  2. RUBRACA [Suspect]
     Active Substance: RUCAPARIB CAMSYLATE
     Dosage: 600 MILLIGRAM, BID
     Dates: start: 20220223, end: 20220405
  3. CARVEDILOL [Concomitant]
     Active Substance: CARVEDILOL
     Indication: Product used for unknown indication
     Dosage: UNK
     Dates: start: 2007
  4. FELODIPINE [Concomitant]
     Active Substance: FELODIPINE
     Indication: Product used for unknown indication
     Dosage: UNK
     Dates: start: 2007
  5. LEVOTHYROXINE [Concomitant]
     Active Substance: LEVOTHYROXINE
     Indication: Product used for unknown indication
     Dosage: UNK
  6. VITAMINS NOS [Concomitant]
     Active Substance: VITAMINS
     Indication: Product used for unknown indication

REACTIONS (21)
  - Oral discomfort [Not Recovered/Not Resolved]
  - Oral pruritus [Not Recovered/Not Resolved]
  - Nasal discomfort [Not Recovered/Not Resolved]
  - Nasal pruritus [Not Recovered/Not Resolved]
  - Ear discomfort [Not Recovered/Not Resolved]
  - Ear pruritus [Not Recovered/Not Resolved]
  - Paraesthesia oral [Recovered/Resolved]
  - Cough [Not Recovered/Not Resolved]
  - Feeling cold [Not Recovered/Not Resolved]
  - Sputum increased [Not Recovered/Not Resolved]
  - Nasal dryness [Not Recovered/Not Resolved]
  - Visual impairment [Unknown]
  - Low density lipoprotein increased [Not Recovered/Not Resolved]
  - Total cholesterol/HDL ratio increased [Unknown]
  - Spinal stenosis [Unknown]
  - Dysphonia [Unknown]
  - Throat irritation [Not Recovered/Not Resolved]
  - Sneezing [Unknown]
  - Choking sensation [Unknown]
  - Blood cholesterol increased [Not Recovered/Not Resolved]
  - Platelet count decreased [Recovering/Resolving]

NARRATIVE: CASE EVENT DATE: 20220201
